FAERS Safety Report 5063634-X (Version None)
Quarter: 2006Q3

REPORT INFORMATION
  Report Type: 
  Country: None (occurrence: None)
  Receive Date: 20060724
  Receipt Date: 20060706
  Transmission Date: 20061208
  Serious: Yes (Hospitalization)
  Sender: FDA-Public Use
  Company Number: 163-21880-06070375

PATIENT
  Age: 57 Year
  Sex: Male

DRUGS (1)
  1. REVLIMID [Suspect]
     Indication: POLYCYTHAEMIA VERA
     Dosage: 1 IN 1 D, ORAL
     Route: 048
     Dates: start: 20060609

REACTIONS (6)
  - ASTHENIA [None]
  - BLOOD COUNT ABNORMAL [None]
  - LYMPHOEDEMA [None]
  - NONSPECIFIC REACTION [None]
  - PYREXIA [None]
  - SKIN ULCER [None]
